FAERS Safety Report 21409333 (Version 13)
Quarter: 2023Q1

REPORT INFORMATION
  Report Type: Spontaneous
  Country: CA (occurrence: CA)
  Receive Date: 20221004
  Receipt Date: 20230120
  Transmission Date: 20230417
  Serious: Yes (Other)
  Sender: FDA-Public Use
  Company Number: CA-PFIZER INC-PV202200049943

PATIENT
  Age: 70 Year
  Sex: Male
  Weight: 69.5 kg

DRUGS (24)
  1. ZIRABEV [Suspect]
     Active Substance: BEVACIZUMAB-BVZR
     Indication: Colon cancer metastatic
     Dosage: FOR 12 CYCLES
     Route: 042
     Dates: start: 202209
  2. ZIRABEV [Suspect]
     Active Substance: BEVACIZUMAB-BVZR
     Dosage: Q2WEEKS FOR 12 CYCLES
     Route: 042
  3. ZIRABEV [Suspect]
     Active Substance: BEVACIZUMAB-BVZR
     Dosage: 650 MG
     Route: 042
     Dates: start: 20221005
  4. ZIRABEV [Suspect]
     Active Substance: BEVACIZUMAB-BVZR
     Dosage: 650 MG
     Route: 042
     Dates: start: 20221005
  5. ZIRABEV [Suspect]
     Active Substance: BEVACIZUMAB-BVZR
     Dosage: Q2 WEEKS (Q14WEEKS)
     Route: 042
     Dates: start: 20221005
  6. ZIRABEV [Suspect]
     Active Substance: BEVACIZUMAB-BVZR
     Dosage: 650 MG
     Route: 042
  7. ZIRABEV [Suspect]
     Active Substance: BEVACIZUMAB-BVZR
     Dosage: 650 MG
     Route: 042
  8. ZIRABEV [Suspect]
     Active Substance: BEVACIZUMAB-BVZR
     Dosage: 680 MG
     Route: 042
  9. ZIRABEV [Suspect]
     Active Substance: BEVACIZUMAB-BVZR
     Dosage: 680 MG
     Route: 042
  10. ZIRABEV [Suspect]
     Active Substance: BEVACIZUMAB-BVZR
     Dosage: 680 MG
     Route: 042
  11. ZIRABEV [Suspect]
     Active Substance: BEVACIZUMAB-BVZR
     Dosage: 680 MG
     Route: 042
  12. ZIRABEV [Suspect]
     Active Substance: BEVACIZUMAB-BVZR
     Dosage: 680 MG
     Route: 042
     Dates: start: 2022
  13. ZIRABEV [Suspect]
     Active Substance: BEVACIZUMAB-BVZR
     Dosage: 680 MG
     Route: 042
     Dates: start: 2022
  14. ZIRABEV [Suspect]
     Active Substance: BEVACIZUMAB-BVZR
     Dosage: EVERY 2 WEEKS FOR 12 CYCLES
     Route: 042
  15. ZIRABEV [Suspect]
     Active Substance: BEVACIZUMAB-BVZR
     Dosage: 680 MG
     Route: 042
     Dates: start: 2022
  16. ZIRABEV [Suspect]
     Active Substance: BEVACIZUMAB-BVZR
     Dosage: 680 MG
     Route: 042
     Dates: start: 20230111
  17. ZIRABEV [Suspect]
     Active Substance: BEVACIZUMAB-BVZR
     Dosage: 680 MG
     Route: 042
     Dates: start: 20230111
  18. APIXABAN [Concomitant]
     Active Substance: APIXABAN
     Dosage: UNK, FULL DOSE
  19. ATENOLOL [Concomitant]
     Active Substance: ATENOLOL
     Dosage: UNK
  20. CAPECITABINE [Concomitant]
     Active Substance: CAPECITABINE
     Indication: Colon cancer metastatic
     Dosage: 1000 MG, CYCLIC (PO BID FOR 14 DAYS OF 21 DAYS FOR 12 CYCLES)
     Route: 048
  21. DALTEPARIN [Concomitant]
     Active Substance: DALTEPARIN
     Dosage: UNK
  22. PANTOPRAZOLE SODIUM [Concomitant]
     Active Substance: PANTOPRAZOLE SODIUM
     Dosage: UNK
  23. PENTOSTATIN [Concomitant]
     Active Substance: PENTOSTATIN
     Dosage: UNK
  24. TRAZIMERA [Concomitant]
     Active Substance: TRASTUZUMAB-QYYP
     Dosage: UNK

REACTIONS (15)
  - Tumour thrombosis [Unknown]
  - Deep vein thrombosis [Unknown]
  - Gastrointestinal haemorrhage [Unknown]
  - Blood pressure systolic increased [Unknown]
  - Neoplasm progression [Unknown]
  - Fatigue [Unknown]
  - Bone marrow disorder [Unknown]
  - Decreased appetite [Recovering/Resolving]
  - Somnolence [Unknown]
  - Weight increased [Unknown]
  - Weight decreased [Not Recovered/Not Resolved]
  - Blood pressure systolic increased [Unknown]
  - Dyspnoea [Unknown]
  - Malaise [Unknown]
  - Off label use [Unknown]

NARRATIVE: CASE EVENT DATE: 20220101
